FAERS Safety Report 5869534-7 (Version None)
Quarter: 2008Q3

REPORT INFORMATION
  Report Type: 
  Country: None (occurrence: None)
  Receive Date: 20080904
  Receipt Date: 20080826
  Transmission Date: 20090109
  Serious: Yes (Hospitalization)
  Sender: FDA-Public Use
  Company Number: ZA-JNJFOC-20080806362

PATIENT
  Age: 6 Year
  Sex: Female

DRUGS (2)
  1. RISPERDAL [Suspect]
     Indication: PSYCHOMOTOR HYPERACTIVITY
     Dosage: 0.3ML MORNING AND 0.5 ML NIGHT
     Route: 048
  2. RITALIN [Concomitant]
     Indication: PSYCHOMOTOR HYPERACTIVITY
     Route: 065

REACTIONS (2)
  - ANXIETY [None]
  - BRONCHOPNEUMONIA [None]
